FAERS Safety Report 21796353 (Version 4)
Quarter: 2023Q1

REPORT INFORMATION
  Report Type: Spontaneous
  Country: US (occurrence: US)
  Receive Date: 20221229
  Receipt Date: 20230322
  Transmission Date: 20230417
  Serious: Yes (Other)
  Sender: FDA-Public Use
  Company Number: US-ALLERGAN-2228162US

PATIENT
  Sex: Female
  Weight: 54.431 kg

DRUGS (4)
  1. REFRESH P.M. [Suspect]
     Active Substance: MINERAL OIL\PETROLATUM
     Indication: Dry eye
     Dosage: 2 GTT, QD
     Route: 047
     Dates: start: 202208, end: 202208
  2. REFRESH P.M. [Suspect]
     Active Substance: MINERAL OIL\PETROLATUM
     Dosage: 1 GTT, QD
     Route: 047
     Dates: start: 20220802, end: 20220802
  3. TYLENOL [Concomitant]
     Active Substance: ACETAMINOPHEN
     Indication: Back pain
  4. ASPIRIN [Concomitant]
     Active Substance: ASPIRIN
     Indication: Back pain

REACTIONS (33)
  - Blindness [Not Recovered/Not Resolved]
  - Chest pain [Recovering/Resolving]
  - Dyspnoea [Recovering/Resolving]
  - Headache [Recovered/Resolved]
  - Swelling face [Not Recovered/Not Resolved]
  - Dysphonia [Unknown]
  - Blister [Unknown]
  - Fear [Unknown]
  - Palpitations [Unknown]
  - Asthenia [Unknown]
  - Fatigue [Unknown]
  - Feeling abnormal [Unknown]
  - Anxiety [Not Recovered/Not Resolved]
  - Restlessness [Unknown]
  - Nasal congestion [Unknown]
  - Skin exfoliation [Unknown]
  - Skin exfoliation [Not Recovered/Not Resolved]
  - Hypoacusis [Unknown]
  - Malaise [Unknown]
  - Illness [Unknown]
  - Nervousness [Not Recovered/Not Resolved]
  - Emotional distress [Unknown]
  - Nasal oedema [Unknown]
  - Bedridden [Unknown]
  - Hypoacusis [Not Recovered/Not Resolved]
  - Impaired quality of life [Not Recovered/Not Resolved]
  - Swelling of eyelid [Unknown]
  - Vision blurred [Unknown]
  - Eye disorder [Unknown]
  - Erythema of eyelid [Not Recovered/Not Resolved]
  - Eye pain [Not Recovered/Not Resolved]
  - Drug hypersensitivity [Unknown]
  - Ocular hyperaemia [Unknown]

NARRATIVE: CASE EVENT DATE: 20220801
